FAERS Safety Report 9492149 (Version 2)
Quarter: 2013Q3

REPORT INFORMATION
  Report Type: Spontaneous
  Country: JP (occurrence: JP)
  Receive Date: 20130830
  Receipt Date: 20130909
  Transmission Date: 20140515
  Serious: Yes (Other)
  Sender: FDA-Public Use
  Company Number: JP-VERTEX PHARMACEUTICALS INC-2013-009172

PATIENT
  Age: 74 Year
  Sex: Female

DRUGS (3)
  1. TELAVIC [Suspect]
     Indication: HEPATITIS C
     Route: 048
  2. UNKNOWN DRUG [Suspect]
     Indication: CHRONIC HEPATITIS C
     Route: 058
  3. UNKNOWN DRUG [Suspect]
     Indication: CHRONIC HEPATITIS C
     Route: 048

REACTIONS (1)
  - Toxic skin eruption [Recovered/Resolved]
